FAERS Safety Report 9858741 (Version 2)
Quarter: 2014Q2

REPORT INFORMATION
  Report Type: Spontaneous
  Country: US (occurrence: US)
  Receive Date: 20140131
  Receipt Date: 20140402
  Transmission Date: 20141212
  Serious: Yes (Other)
  Sender: FDA-Public Use
  Company Number: US-PFIZER INC-2014027576

PATIENT
  Age: 51 Year
  Sex: Female
  Weight: 88.44 kg

DRUGS (3)
  1. LYRICA [Suspect]
     Indication: NEURALGIA
     Dosage: 150 MG, 1X/DAY
     Dates: start: 201401
  2. FLUOXETINE [Concomitant]
     Indication: ANXIETY
     Dosage: UNK
  3. BUPROPION [Concomitant]
     Indication: ANXIETY
     Dosage: UNK

REACTIONS (3)
  - Multiple sclerosis [Unknown]
  - Weight increased [Unknown]
  - Nasopharyngitis [Unknown]
